FAERS Safety Report 6936711-3 (Version None)
Quarter: 2010Q3

REPORT INFORMATION
  Report Type: 
  Country: None (occurrence: None)
  Receive Date: 20100823
  Receipt Date: 20100812
  Transmission Date: 20110219
  Serious: Yes (Death)
  Sender: FDA-Public Use
  Company Number: US-JNJFOC-20100804445

PATIENT
  Sex: Female
  Weight: 174.64 kg

DRUGS (12)
  1. REMICADE [Suspect]
     Indication: RHEUMATOID ARTHRITIS
     Route: 042
  2. REMICADE [Suspect]
     Route: 042
  3. REMICADE [Suspect]
     Route: 042
  4. ARAVA [Concomitant]
  5. FOLATE [Concomitant]
  6. OXYCODONE [Concomitant]
  7. ATENOLOL [Concomitant]
  8. OXYCODONE HCL AND ACETAMINOPHEN [Concomitant]
  9. LASIX [Concomitant]
  10. IODINE [Concomitant]
  11. METHOTREXATE [Concomitant]
  12. CLARITIN [Concomitant]
     Indication: PREMEDICATION

REACTIONS (5)
  - CHEST PAIN [None]
  - DEATH [None]
  - DYSPNOEA [None]
  - INFUSION RELATED REACTION [None]
  - NAUSEA [None]
